FAERS Safety Report 6373163-9 (Version None)
Quarter: 2009Q3

REPORT INFORMATION
  Report Type: 
  Country: None (occurrence: None)
  Receive Date: 20090924
  Receipt Date: 20090126
  Transmission Date: 20100115
  Serious: No
  Sender: FDA-Public Use
  Company Number: US-ASTRAZENECA-2009UW02197

PATIENT
  Age: 82 Year
  Sex: Male
  Weight: 74.8 kg

DRUGS (6)
  1. SEROQUEL [Suspect]
     Route: 048
  2. ASPIRIN [Concomitant]
     Indication: CARDIAC DISORDER
  3. CITALOPRAM [Concomitant]
  4. DOCUSATE [Concomitant]
     Indication: FAECES HARD
  5. OMEPRAZOLE [Concomitant]
     Indication: ABDOMINAL DISCOMFORT
  6. SIMVASTATIN [Concomitant]
     Indication: BLOOD CHOLESTEROL INCREASED

REACTIONS (4)
  - ABNORMAL BEHAVIOUR [None]
  - AGGRESSION [None]
  - ANGER [None]
  - MOOD SWINGS [None]
